FAERS Safety Report 4664162-3 (Version None)
Quarter: 2005Q2

REPORT INFORMATION
  Report Type: 
  Country: None (occurrence: None)
  Receive Date: 20050516
  Receipt Date: 20050516
  Transmission Date: 20051028
  Serious: Yes (Life-Threatening, Hospitalization)
  Sender: FDA-Public Use
  Company Number: None

PATIENT
  Age: 63 Year
  Sex: Male
  Weight: 80 kg

DRUGS (1)
  1. CARBAMAZEPINE [Suspect]
     Indication: BIPOLAR DISORDER
     Dosage: 600MG   BID  ORAL
     Route: 048
     Dates: start: 19960110, end: 20040514

REACTIONS (2)
  - LABORATORY TEST ABNORMAL [None]
  - SELF-MEDICATION [None]
